FAERS Safety Report 9269398 (Version 1)
Quarter: 2013Q2

REPORT INFORMATION
  Report Type: Spontaneous
  Country: US (occurrence: US)
  Receive Date: 20130503
  Receipt Date: 20130503
  Transmission Date: 20140414
  Serious: Yes (Hospitalization)
  Sender: FDA-Public Use
  Company Number: US-JNJFOC-20130414019

PATIENT
  Age: 56 Year
  Sex: Male
  Weight: 98.88 kg

DRUGS (14)
  1. TOPAMAX [Suspect]
     Indication: BASILAR MIGRAINE
     Route: 048
  2. TOPAMAX [Suspect]
     Indication: VERTIGO
     Route: 048
  3. ATENOLOL [Concomitant]
     Indication: MIGRAINE
     Route: 048
  4. FIORINAL WITH CODEINE [Concomitant]
     Indication: MIGRAINE
     Route: 048
  5. ZOFRAN [Concomitant]
     Indication: NAUSEA
     Route: 048
  6. MIDRIN [Concomitant]
     Route: 065
  7. ACTOS [Concomitant]
     Indication: TYPE 2 DIABETES MELLITUS
     Route: 048
  8. COMPAZINE [Concomitant]
     Indication: NAUSEA
     Route: 054
  9. PENTASA [Concomitant]
     Indication: CROHN^S DISEASE
     Route: 065
  10. LEVSIN [Concomitant]
     Indication: MUSCLE SPASMS
     Route: 065
  11. SUDAFED (PSEUDOEPHEDRINE HYDROCHLORIDE) [Concomitant]
     Indication: SEASONAL ALLERGY
     Dosage: AS NEEDED.
     Route: 048
  12. ZYRTEC [Concomitant]
     Indication: SEASONAL ALLERGY
     Dosage: AS NEEDED.
     Route: 048
  13. MAGNESIUM [Concomitant]
     Indication: NUTRITIONAL SUPPLEMENTATION
     Route: 048
  14. B2 [Concomitant]
     Indication: NUTRITIONAL SUPPLEMENTATION
     Route: 048

REACTIONS (8)
  - Colitis ischaemic [Not Recovered/Not Resolved]
  - Colitis ulcerative [Not Recovered/Not Resolved]
  - Gastrointestinal haemorrhage [Recovered/Resolved]
  - Irritable bowel syndrome [Not Recovered/Not Resolved]
  - Inflammation [Recovered/Resolved]
  - Drug ineffective for unapproved indication [Not Recovered/Not Resolved]
  - Headache [Not Recovered/Not Resolved]
  - Muscle spasms [Not Recovered/Not Resolved]
